FAERS Safety Report 6248046-5 (Version None)
Quarter: 2009Q2

REPORT INFORMATION
  Report Type: 
  Country: None (occurrence: None)
  Receive Date: 20090626
  Receipt Date: 20090623
  Transmission Date: 20091009
  Serious: Yes (Other)
  Sender: FDA-Public Use
  Company Number: US-JNJCH-2009003952

PATIENT
  Sex: Female

DRUGS (1)
  1. LUBRIDERM DAILY MOISTURE FRAGRANCE FREE [Suspect]
     Indication: DRUG USE FOR UNKNOWN INDICATION
     Dosage: TEXT:^SMALL PORTION^, UNSPECIFIED
     Route: 061

REACTIONS (3)
  - ASTHMA [None]
  - HYPERSENSITIVITY [None]
  - PRODUCT QUALITY ISSUE [None]
